FAERS Safety Report 19518062 (Version 3)
Quarter: 2021Q3

REPORT INFORMATION
  Report Type: Report from Study
  Country: NL (occurrence: NL)
  Receive Date: 20210712
  Receipt Date: 20210719
  Transmission Date: 20211014
  Serious: Yes (Death, Hospitalization)
  Sender: FDA-Public Use
  Company Number: NVSC2021NL153524

PATIENT
  Age: 75 Year
  Sex: Male

DRUGS (4)
  1. MIDOSTAURIN [Suspect]
     Active Substance: MIDOSTAURIN
     Indication: MYELODYSPLASTIC SYNDROME
  2. DECITABINE. [Suspect]
     Active Substance: DECITABINE
     Indication: ACUTE MYELOID LEUKAEMIA
     Dosage: 42 MG
     Route: 042
     Dates: start: 20210603, end: 20210612
  3. MIDOSTAURIN [Suspect]
     Active Substance: MIDOSTAURIN
     Indication: ACUTE MYELOID LEUKAEMIA
     Dosage: 100 MG
     Route: 048
     Dates: start: 20210613, end: 20210626
  4. DECITABINE. [Suspect]
     Active Substance: DECITABINE
     Indication: MYELODYSPLASTIC SYNDROME
     Dosage: 42 MG
     Route: 042
     Dates: start: 20210701, end: 20210705

REACTIONS (2)
  - Respiratory failure [Fatal]
  - Anal haemorrhage [Recovered/Resolved]

NARRATIVE: CASE EVENT DATE: 20210618
